FAERS Safety Report 5015108-X (Version None)
Quarter: 2006Q2

REPORT INFORMATION
  Report Type: 
  Country: None (occurrence: None)
  Receive Date: 20060414
  Receipt Date: 20060310
  Transmission Date: 20061013
  Serious: No
  Sender: FDA-Public Use
  Company Number: 2005SP000403

PATIENT
  Age: 51 Year
  Sex: Female
  Weight: 75.2971 kg

DRUGS (6)
  1. LUNESTA [Suspect]
     Indication: INSOMNIA
     Dosage: 2 MG;ORAL    : 3 MG; ORAL
     Route: 048
     Dates: start: 20050419, end: 20060301
  2. LUNESTA [Suspect]
     Indication: INSOMNIA
     Dosage: 2 MG;ORAL    : 3 MG; ORAL
     Route: 048
     Dates: start: 20060305
  3. XANAX [Concomitant]
  4. SINGULAIR [Concomitant]
  5. ZANTAC [Concomitant]
  6. OTHER CHEMOTHERAPEUTICS [Concomitant]

REACTIONS (3)
  - GASTROINTESTINAL PAIN [None]
  - HEADACHE [None]
  - MIDDLE INSOMNIA [None]
